FAERS Safety Report 12698601 (Version 10)
Quarter: 2019Q3

REPORT INFORMATION
  Report Type: Report from Study
  Country: IT (occurrence: IT)
  Receive Date: 20160830
  Receipt Date: 20190720
  Transmission Date: 20191004
  Serious: Yes (Hospitalization)
  Sender: FDA-Public Use
  Company Number: PHHY2016IT108079

PATIENT
  Age: 31 Year
  Sex: Male
  Weight: 80 kg

DRUGS (3)
  1. TYSABRI [Suspect]
     Active Substance: NATALIZUMAB
     Indication: MULTIPLE SCLEROSIS
     Dosage: UNK, QMO
     Route: 042
     Dates: start: 20140331, end: 20160215
  2. METHYLPREDNISOLONE. [Concomitant]
     Active Substance: METHYLPREDNISOLONE
     Indication: PRODUCT USED FOR UNKNOWN INDICATION
     Dosage: 0.033 G, UNK (1 GM ,1 IN M)
     Route: 065
     Dates: start: 20160318
  3. GILENYA [Suspect]
     Active Substance: FINGOLIMOD HYDROCHLORIDE
     Indication: MULTIPLE SCLEROSIS
     Dosage: 0.5 MG, QD
     Route: 048
     Dates: start: 20160525, end: 20160715

REACTIONS (7)
  - Immune reconstitution inflammatory syndrome [Recovered/Resolved]
  - Progressive multifocal leukoencephalopathy [Recovered/Resolved]
  - Loss of consciousness [Recovering/Resolving]
  - JC polyomavirus test positive [Recovering/Resolving]
  - Generalised tonic-clonic seizure [Recovered/Resolved]
  - Diplopia [Recovered/Resolved]
  - Hemianopia [Recovering/Resolving]

NARRATIVE: CASE EVENT DATE: 20160705
